FAERS Safety Report 8819886 (Version 4)
Quarter: 2013Q1

REPORT INFORMATION
  Report Type: Spontaneous
  Country: US (occurrence: US)
  Receive Date: 20121001
  Receipt Date: 20130228
  Transmission Date: 20140127
  Serious: Yes (Other)
  Sender: FDA-Public Use
  Company Number: US-US-EMD SERONO, INC.-7163605

PATIENT
  Sex: Female

DRUGS (2)
  1. REBIF [Suspect]
     Indication: PRODUCT USED FOR UNKNOWN INDICATION
     Route: 058
     Dates: start: 20111201
  2. INSULIN [Concomitant]
     Indication: DIABETES MELLITUS

REACTIONS (9)
  - Cataract [Not Recovered/Not Resolved]
  - Glaucoma [Unknown]
  - Platelet count decreased [Not Recovered/Not Resolved]
  - Blood glucose abnormal [Unknown]
  - Fall [Not Recovered/Not Resolved]
  - Injection site haemorrhage [Not Recovered/Not Resolved]
  - Injection site erythema [Not Recovered/Not Resolved]
  - Injection site necrosis [Unknown]
  - Injection site mass [Unknown]
